FAERS Safety Report 5061175-7 (Version None)
Quarter: 2006Q3

REPORT INFORMATION
  Report Type: 
  Country: None (occurrence: None)
  Receive Date: 20060719
  Receipt Date: 20060719
  Transmission Date: 20061208
  Serious: Yes (Hospitalization)
  Sender: FDA-Public Use
  Company Number: None

PATIENT
  Age: 59 Year
  Sex: Male
  Weight: 66.2252 kg

DRUGS (1)
  1. PAROXETINE [Suspect]
     Dosage: 60 MG PO QD
     Route: 048

REACTIONS (4)
  - DRUG DOSE OMISSION [None]
  - ORTHOSTATIC HYPOTENSION [None]
  - SYNCOPE [None]
  - TREATMENT NONCOMPLIANCE [None]
